FAERS Safety Report 14776700 (Version 2)
Quarter: 2018Q4

REPORT INFORMATION
  Report Type: Spontaneous
  Country: FR (occurrence: FR)
  Receive Date: 20180419
  Receipt Date: 20181025
  Transmission Date: 20190204
  Serious: Yes (Other)
  Sender: FDA-Public Use
  Company Number: FR-MERCK KGAA-2046001

PATIENT
  Sex: Female

DRUGS (1)
  1. EUTHYROX [Suspect]
     Active Substance: LEVOTHYROXINE SODIUM
     Indication: PRODUCT USED FOR UNKNOWN INDICATION
     Dates: start: 20170219, end: 20170904

REACTIONS (15)
  - Memory impairment [None]
  - Hyperphagia [None]
  - Headache [None]
  - Malaise [Not Recovered/Not Resolved]
  - Hyperthyroidism [None]
  - Disturbance in attention [None]
  - Constipation [None]
  - Balance disorder [None]
  - Vertigo [None]
  - Blood thyroid stimulating hormone increased [Recovered/Resolved]
  - Asthenia [None]
  - Decreased appetite [None]
  - Depression [Not Recovered/Not Resolved]
  - Feeling cold [None]
  - Diarrhoea [None]

NARRATIVE: CASE EVENT DATE: 2017
